FAERS Safety Report 12706035 (Version 2)
Quarter: 2016Q3

REPORT INFORMATION
  Report Type: Spontaneous
  Country: US (occurrence: US)
  Receive Date: 20160901
  Receipt Date: 20160901
  Transmission Date: 20161109
  Serious: No
  Sender: FDA-Public Use
  Company Number: US-JAZZ-2016-US-007751

PATIENT
  Sex: Female

DRUGS (40)
  1. XYREM [Suspect]
     Active Substance: SODIUM OXYBATE
     Indication: PRODUCT USED FOR UNKNOWN INDICATION
     Dosage: 2.25 G, BID
     Route: 048
     Dates: start: 200506, end: 200507
  2. VICKS VAPORUB [Concomitant]
     Active Substance: CAMPHOR (SYNTHETIC)\EUCALYPTUS OIL\MENTHOL
  3. FLUZONE [Concomitant]
     Active Substance: INFLUENZA A VIRUS A/CALIFORNIA/7/2009 X-179A (H1N1) ANTIGEN (FORMALDEHYDE INACTIVATED)\INFLUENZA A VIRUS A/VICTORIA/210/2009 X-187 (H3N2) ANTIGEN (FORMALDEHYDE INACTIVATED)\INFLUENZA B VIRUS B/BRISBANE/60/2008 ANTIGEN (FORMALDEHYDE INACTIVATED)
  4. TETANUS AND DIPHTHERIA TOXOIDS ADSORBED [Concomitant]
     Active Substance: CLOSTRIDIUM TETANI\CLOSTRIDIUM TETANI TOXOID ANTIGEN (FORMALDEHYDE INACTIVATED)\CORYNEBACTERIUM DIPHTHERIAE\CORYNEBACTERIUM DIPHTHERIAE TOXOID ANTIGEN (FORMALDEHYDE INACTIVATED)
  5. ELETONE [Concomitant]
  6. HALLS [Concomitant]
     Active Substance: MENTHOL
  7. LACTULOSE. [Concomitant]
     Active Substance: LACTULOSE
  8. SINUS RINSE [Concomitant]
     Active Substance: SODIUM BICARBONATE\SODIUM CHLORIDE
  9. NEOSPORIN [Concomitant]
     Active Substance: BACITRACIN ZINC\NEOMYCIN SULFATE\POLYMYXIN B SULFATE
  10. ALPRAZOLAM. [Concomitant]
     Active Substance: ALPRAZOLAM
  11. AMLODIPINE BESYLATE. [Concomitant]
     Active Substance: AMLODIPINE BESYLATE
  12. EXCEDRIN [Concomitant]
     Active Substance: ACETAMINOPHEN\ASPIRIN\CAFFEINE
  13. OMEPRAZOLE. [Concomitant]
     Active Substance: OMEPRAZOLE
  14. PAROXETINE HCL [Concomitant]
     Active Substance: PAROXETINE HYDROCHLORIDE
  15. ASPIRIN. [Concomitant]
     Active Substance: ASPIRIN
  16. ERYTHROMYCIN. [Concomitant]
     Active Substance: ERYTHROMYCIN
  17. IMODIUM A-D [Concomitant]
     Active Substance: LOPERAMIDE HYDROCHLORIDE
  18. LEVOTHYROXINE. [Concomitant]
     Active Substance: LEVOTHYROXINE
  19. GUAIFENESIN. [Concomitant]
     Active Substance: GUAIFENESIN
  20. METOPROLOL SUCCINATE. [Concomitant]
     Active Substance: METOPROLOL SUCCINATE
  21. VITAMIN D [Concomitant]
     Active Substance: CHOLECALCIFEROL
  22. BIOTENE NOS [Concomitant]
     Active Substance: CETYLPYRIDINIUM CHLORIDE OR SODIUM FLUORIDE OR SODIUM MONOFLUOROPHOSPHATE OR GLUCOSE OXIDASE\LACTOFERRIN\LACTOPEROXIDASE BOVINE\LYSOZYME
  23. CELEBREX [Concomitant]
     Active Substance: CELECOXIB
  24. LIDOCAINE. [Concomitant]
     Active Substance: LIDOCAINE
  25. LISINOPRIL. [Concomitant]
     Active Substance: LISINOPRIL
  26. SUMATRIPTAN. [Concomitant]
     Active Substance: SUMATRIPTAN
  27. MODAFINIL. [Concomitant]
     Active Substance: MODAFINIL
  28. WARFARIN SODIUM. [Concomitant]
     Active Substance: WARFARIN SODIUM
  29. LORATADINE. [Concomitant]
     Active Substance: LORATADINE
  30. PREVIDENT [Concomitant]
     Active Substance: SODIUM FLUORIDE
  31. TRAMADOL HCL [Concomitant]
     Active Substance: TRAMADOL HYDROCHLORIDE
  32. GABAPENTIN. [Concomitant]
     Active Substance: GABAPENTIN
  33. XYREM [Suspect]
     Active Substance: SODIUM OXYBATE
     Dosage: 4.5 G, BID
     Route: 048
     Dates: start: 200507
  34. AMOXICILLIN. [Concomitant]
     Active Substance: AMOXICILLIN
  35. SIMVASTATIN. [Concomitant]
     Active Substance: SIMVASTATIN
  36. XYREM [Suspect]
     Active Substance: SODIUM OXYBATE
     Dosage: 3 G, BID
     Route: 048
     Dates: start: 200507, end: 200507
  37. MIRTAZAPINE. [Suspect]
     Active Substance: MIRTAZAPINE
     Indication: PRODUCT USED FOR UNKNOWN INDICATION
  38. FLUTICASONE PROPRIONATE [Concomitant]
     Active Substance: FLUTICASONE PROPIONATE
  39. MAPAP [Concomitant]
     Active Substance: ACETAMINOPHEN
  40. OYSTER SHELL CALCIUM + D3 [Concomitant]

REACTIONS (3)
  - Depressed level of consciousness [Unknown]
  - Speech disorder [Unknown]
  - Tremor [Unknown]
